FAERS Safety Report 8576333-4 (Version None)
Quarter: 2012Q3

REPORT INFORMATION
  Report Type: 
  Country: None (occurrence: None)
  Receive Date: 20120807
  Receipt Date: 20070720
  Transmission Date: 20120928
  Serious: Yes (Other)
  Sender: FDA-Public Use
  Company Number: CO-PFIZER INC-2012184687

PATIENT
  Age: 77 Year
  Sex: Male

DRUGS (4)
  1. ACETYLSALICYLIC ACID [Concomitant]
     Dosage: 100 MG, 1X/DAY
  2. LIPITOR [Suspect]
     Indication: DYSLIPIDAEMIA
     Dosage: 10 MG, 1X/DAY
  3. QUINAPRIL AND HYDROCHLOROTHIAZIDE [Suspect]
     Indication: HYPERTENSION
     Dosage: 1 DF (20/12.5 MG), 1X/DAY
  4. METOPROLOL TARTRATE [Concomitant]
     Dosage: 50 MG, 2X/DAY

REACTIONS (5)
  - MUSCLE SPASMS [None]
  - DIZZINESS [None]
  - CARDIAC FAILURE [None]
  - DYSPNOEA [None]
  - NECK PAIN [None]
